FAERS Safety Report 4307532-5 (Version None)
Quarter: 2004Q1

REPORT INFORMATION
  Report Type: 
  Country: None (occurrence: None)
  Receive Date: 20040226
  Receipt Date: 20040218
  Transmission Date: 20041129
  Serious: Yes (Hospitalization)
  Sender: FDA-Public Use
  Company Number: 2003-06-0658

PATIENT
  Age: 48 Year
  Sex: Male
  Weight: 59 kg

DRUGS (9)
  1. REBETOL [Suspect]
     Indication: HEPATITIS C
     Dosage: UNKNOWN ORAL
     Route: 048
     Dates: start: 20021007, end: 20030321
  2. INTRON A (INTERFERON ALFA-2B RECOMVINANT) INJECTABLE POWDER [Suspect]
     Indication: HEPATITIS C
     Dosage: 6-3 MU*QD-TIW SUBCUTANEOUS
     Route: 058
     Dates: start: 20021007, end: 20021018
  3. INTRON A (INTERFERON ALFA-2B RECOMVINANT) INJECTABLE POWDER [Suspect]
     Indication: HEPATITIS C
     Dosage: 6-3 MU*QD-TIW SUBCUTANEOUS
     Route: 058
     Dates: start: 20021007, end: 20030321
  4. INTRON A (INTERFERON ALFA-2B RECOMVINANT) INJECTABLE POWDER [Suspect]
     Indication: HEPATITIS C
     Dosage: 6-3 MU*QD-TIW SUBCUTANEOUS
     Route: 058
     Dates: start: 20021021, end: 20030321
  5. URSODEOXYCHOLIC ACID [Concomitant]
  6. CANDESARTAN CILEXETIL [Concomitant]
  7. DILTIAZEM HYDROCHORIDE [Concomitant]
  8. AMLODIPINE [Concomitant]
  9. GLIMEPIRIDE [Concomitant]

REACTIONS (8)
  - ABNORMAL BEHAVIOUR [None]
  - ASTHENIA [None]
  - BLOOD CREATINE PHOSPHOKINASE INCREASED [None]
  - DIFFICULTY IN WALKING [None]
  - DYSSTASIA [None]
  - FATIGUE [None]
  - MUSCULAR WEAKNESS [None]
  - MYOSITIS [None]
